FAERS Safety Report 13239277 (Version 1)
Quarter: 2017Q1

REPORT INFORMATION
  Report Type: Spontaneous
  Country: DE (occurrence: DE)
  Receive Date: 20170216
  Receipt Date: 20170216
  Transmission Date: 20170428
  Serious: Yes (Other)
  Sender: FDA-Public Use
  Company Number: US-ASTRAZENECA-2017SE16747

PATIENT
  Sex: Female

DRUGS (3)
  1. CANDESARTAN CILEXETIL AND HYDROCHLOROTHIAZIDE [Suspect]
     Active Substance: CANDESARTAN CILEXETIL\HYDROCHLOROTHIAZIDE
     Indication: PRODUCT USED FOR UNKNOWN INDICATION
     Dosage: 16/12.5MG,UNK
     Route: 048
  2. CAPVAL [Concomitant]
     Active Substance: NOSCAPINE
     Dosage: UNK
  3. MUCOSOLVAN [Concomitant]
     Active Substance: AMBROXOL HYDROCHLORIDE
     Dosage: UNK

REACTIONS (2)
  - Cerebrovascular accident [Unknown]
  - Rash [Unknown]

NARRATIVE: CASE EVENT DATE: 2014
